FAERS Safety Report 14577328 (Version 1)
Quarter: 2018Q1

REPORT INFORMATION
  Report Type: Report from Study
  Country: US (occurrence: US)
  Receive Date: 20180227
  Receipt Date: 20180227
  Transmission Date: 20180509
  Serious: Yes (Death)
  Sender: FDA-Public Use
  Company Number: US-TAKEDA-2017TUS024400

PATIENT
  Sex: Female

DRUGS (1)
  1. PONATINIB [Suspect]
     Active Substance: PONATINIB
     Indication: COLON CANCER
     Dosage: 30 MG, QD
     Route: 048
     Dates: start: 20171110

REACTIONS (3)
  - Death [Fatal]
  - Off label use [Unknown]
  - Malaise [Unknown]
